FAERS Safety Report 7325403-7 (Version None)
Quarter: 2011Q1

REPORT INFORMATION
  Report Type: 
  Country: None (occurrence: None)
  Receive Date: 20110218
  Receipt Date: 20110204
  Transmission Date: 20110831
  Serious: Yes (Life-Threatening, Hospitalization)
  Sender: FDA-Public Use
  Company Number: 2011MA001220

PATIENT
  Age: 69 Year
  Sex: Female

DRUGS (2)
  1. RAMIPRIL [Suspect]
     Indication: HYPERTENSION
     Dosage: 3.75 MG; QD; PO
     Route: 048
     Dates: start: 20101011, end: 20101016
  2. BISOPROLOL [Concomitant]

REACTIONS (7)
  - ANGIOEDEMA [None]
  - BLOOD SODIUM DECREASED [None]
  - RESTLESSNESS [None]
  - BLOOD PRESSURE INCREASED [None]
  - HAEMOGLOBIN DECREASED [None]
  - ANXIETY [None]
  - INTERNATIONAL NORMALISED RATIO DECREASED [None]
